FAERS Safety Report 4349902-5 (Version None)
Quarter: 2004Q2

REPORT INFORMATION
  Report Type: 
  Country: None (occurrence: None)
  Receive Date: 20040426
  Receipt Date: 20040409
  Transmission Date: 20050107
  Serious: Yes (Hospitalization)
  Sender: FDA-Public Use
  Company Number: S04-USA-00559-01

PATIENT
  Age: 25 Year
  Sex: Female

DRUGS (1)
  1. LEXAPRO [Suspect]
     Indication: DEPRESSION
     Dosage: 10 MG QD PO
     Route: 048
     Dates: start: 20030715

REACTIONS (4)
  - ABDOMINAL PAIN [None]
  - DISEASE RECURRENCE [None]
  - OVARIAN CYST [None]
  - PAIN [None]
